FAERS Safety Report 4426077-5 (Version None)
Quarter: 2004Q3

REPORT INFORMATION
  Report Type: 
  Country: None (occurrence: None)
  Receive Date: 20040811
  Receipt Date: 20040723
  Transmission Date: 20050211
  Serious: Yes (Hospitalization)
  Sender: FDA-Public Use
  Company Number: DSA_24742_2004

PATIENT
  Age: 47 Year
  Sex: Female

DRUGS (5)
  1. TAVOR [Suspect]
     Dosage: 10 MG ONCE PO
     Route: 048
     Dates: start: 20040720, end: 20040720
  2. ALCOHOL [Suspect]
     Dates: start: 20040720, end: 20040720
  3. UNSPECIFIED BETABLOCKER [Suspect]
     Dosage: 20 TAB ONCE PO
     Route: 048
     Dates: start: 20040720, end: 20040720
  4. OMEGA 3 [Suspect]
     Dosage: 30 TAB ONCE PO
     Route: 048
     Dates: start: 20040720, end: 20040720
  5. VENLAFAXINE HCL [Suspect]
     Dosage: 675 MG ONCE PO
     Route: 048
     Dates: start: 20040720, end: 20040720

REACTIONS (6)
  - BLOOD ALCOHOL INCREASED [None]
  - BLOOD PRESSURE INCREASED [None]
  - MULTIPLE DRUG OVERDOSE INTENTIONAL [None]
  - SOMNOLENCE [None]
  - SUICIDE ATTEMPT [None]
  - TACHYCARDIA [None]
